FAERS Safety Report 7012641-6 (Version None)
Quarter: 2010Q3

REPORT INFORMATION
  Report Type: 
  Country: None (occurrence: None)
  Receive Date: 20100913
  Receipt Date: 20100122
  Transmission Date: 20110219
  Serious: Yes (Other)
  Sender: FDA-Public Use
  Company Number: 2010SP005017

PATIENT
  Age: 31 Year
  Sex: Female
  Weight: 121.1104 kg

DRUGS (3)
  1. IMPLANON [Suspect]
     Indication: PRODUCT USED FOR UNKNOWN INDICATION
     Dosage: 1 DF;
     Dates: start: 20091002
  2. ALDOMET (CON.) [Concomitant]
  3. HYDROXYZINE (CON.) [Concomitant]

REACTIONS (4)
  - HYPERTENSION [None]
  - HYPOAESTHESIA [None]
  - MENORRHAGIA [None]
  - PAIN IN EXTREMITY [None]
